FAERS Safety Report 6504145-1 (Version None)
Quarter: 2009Q4

REPORT INFORMATION
  Report Type: 
  Country: None (occurrence: None)
  Receive Date: 20091215
  Receipt Date: 20091130
  Transmission Date: 20100525
  Serious: Yes (Death, Hospitalization)
  Sender: FDA-Public Use
  Company Number: 2009003209

PATIENT
  Age: 62 Year
  Sex: Male

DRUGS (5)
  1. ERLOTINIB HYDROCHLORIDE [Suspect]
     Indication: NON-SMALL CELL LUNG CANCER METASTATIC
     Dosage: (QD),ORAL
     Route: 048
     Dates: start: 20090824, end: 20091029
  2. DICLOFENAC SODIUM [Concomitant]
  3. CODEINE PHOSPHATE [Concomitant]
  4. LANSOPRAZOLE [Concomitant]
  5. NYSTATIN [Concomitant]

REACTIONS (5)
  - BACK PAIN [None]
  - MALIGNANT NEOPLASM PROGRESSION [None]
  - NON-SMALL CELL LUNG CANCER METASTATIC [None]
  - SPINAL CORD COMPRESSION [None]
  - URINARY RETENTION [None]
